FAERS Safety Report 22240275 (Version 1)
Quarter: 2023Q2

REPORT INFORMATION
  Report Type: Spontaneous
  Country: US (occurrence: US)
  Receive Date: 20230421
  Receipt Date: 20230421
  Transmission Date: 20230721
  Serious: No
  Sender: FDA-Public Use
  Company Number: US-ALLERGAN-2218521US

PATIENT
  Sex: Male

DRUGS (1)
  1. CYCLOSPORINE [Suspect]
     Active Substance: CYCLOSPORINE
     Indication: Product used for unknown indication
     Dosage: TWICE A DAY IN EACH EYE
     Route: 047
     Dates: start: 20220601

REACTIONS (4)
  - Cough [Unknown]
  - Nausea [Unknown]
  - Secretion discharge [Unknown]
  - Eye irritation [Unknown]
